FAERS Safety Report 9252544 (Version 1)
Quarter: 2013Q2

REPORT INFORMATION
  Report Type: Spontaneous
  Country: IT (occurrence: IT)
  Receive Date: 20130424
  Receipt Date: 20130424
  Transmission Date: 20140414
  Serious: Yes (Hospitalization)
  Sender: FDA-Public Use
  Company Number: IT-ASTRAZENECA-2013SE25552

PATIENT
  Age: 31625 Day
  Sex: Male

DRUGS (5)
  1. ZESTRIL [Suspect]
     Route: 048
     Dates: start: 2013, end: 20130407
  2. LUVION [Interacting]
     Route: 048
     Dates: start: 2013, end: 20130407
  3. CONGESCOR [Concomitant]
     Route: 048
  4. LASIX [Concomitant]
     Route: 048
  5. FERRO-GRAD [Concomitant]
     Route: 048

REACTIONS (3)
  - Drug interaction [Unknown]
  - Renal failure acute [Recovering/Resolving]
  - Hyperkalaemia [Recovering/Resolving]
